FAERS Safety Report 14627112 (Version 2)
Quarter: 2018Q2

REPORT INFORMATION
  Report Type: Report from Study
  Country: GB (occurrence: GB)
  Receive Date: 20180312
  Receipt Date: 20180405
  Transmission Date: 20180711
  Serious: Yes (Death, Hospitalization, Other)
  Sender: FDA-Public Use
  Company Number: GB-TEVA-2018-GB-866331

PATIENT
  Age: 13 Year
  Sex: Female

DRUGS (8)
  1. METHOTREXATE. [Suspect]
     Active Substance: METHOTREXATE
     Indication: STILL^S DISEASE
     Dosage: 15 MG/M2/WEEK
     Route: 058
  2. PREDNISOLONE. [Suspect]
     Active Substance: PREDNISOLONE
     Indication: STILL^S DISEASE
     Dosage: 0.5-1 MG/KG/DAY WITH ADJUSTING AND AIMING FOR ALTERNATE DAY REGIMEN WHENEVER POSSIBLE
     Route: 048
  3. ETANERCEPT [Suspect]
     Active Substance: ETANERCEPT
     Indication: STILL^S DISEASE
     Dosage: 0.4 MG/KG/WEEK
     Route: 065
     Dates: start: 200003, end: 200005
  4. METHYLPREDNISOLONE. [Suspect]
     Active Substance: METHYLPREDNISOLONE
     Indication: STILL^S DISEASE
     Dosage: WEEKLY IV METHYLPREDNISOLONE PULSES (30 MG/KG/DAY; MAXIMUM 1G) GIVEN AS A 3-DAY COURSE OR SINGLE
     Route: 050
  5. INFLIXIMAB [Suspect]
     Active Substance: INFLIXIMAB
     Indication: STILL^S DISEASE
     Dosage: 5MG/KG SINGLE DOSE
     Route: 065
     Dates: start: 200402
  6. HYDROCORTISONE. [Suspect]
     Active Substance: HYDROCORTISONE
     Indication: ADRENAL INSUFFICIENCY
     Route: 065
     Dates: start: 20040228
  7. HYDROCORTISONE. [Suspect]
     Active Substance: HYDROCORTISONE
     Indication: HYPOTENSION
     Dosage: ADMINISTERED SECOND TIME DUE TO DEVELOPMENT OF HYPOTENSION
     Route: 065
     Dates: start: 20040229
  8. ETANERCEPT [Suspect]
     Active Substance: ETANERCEPT
     Dosage: 0.4 MG/KG/WEEK
     Route: 065
     Dates: start: 200305, end: 200401

REACTIONS (13)
  - Cataract [Not Recovered/Not Resolved]
  - Device related sepsis [Fatal]
  - Staphylococcal infection [Fatal]
  - Adrenal atrophy [Fatal]
  - Bone tuberculosis [Not Recovered/Not Resolved]
  - Hypotension [Fatal]
  - Growth retardation [Not Recovered/Not Resolved]
  - Pulmonary congestion [Fatal]
  - Cardio-respiratory arrest [Fatal]
  - Cushingoid [Not Recovered/Not Resolved]
  - Osteoporosis [Not Recovered/Not Resolved]
  - Streptococcal infection [Fatal]
  - Pleural effusion [Fatal]

NARRATIVE: CASE EVENT DATE: 20040301
